FAERS Safety Report 10039495 (Version 2)
Quarter: 2014Q2

REPORT INFORMATION
  Report Type: Report from Study
  Country: JP (occurrence: JP)
  Receive Date: 20140326
  Receipt Date: 20140527
  Transmission Date: 20141212
  Serious: Yes (Hospitalization)
  Sender: FDA-Public Use
  Company Number: JP-UCBSA-115529

PATIENT
  Age: 64 Year
  Sex: Female
  Weight: 68.5 kg

DRUGS (5)
  1. CIMZIA [Suspect]
     Indication: RHEUMATOID ARTHRITIS
     Route: 058
     Dates: start: 20131114, end: 20140417
  2. CIMZIA [Suspect]
     Indication: RHEUMATOID ARTHRITIS
     Route: 058
     Dates: start: 20131003, end: 20131031
  3. RHEUMATREX [Concomitant]
     Route: 048
  4. VOLTAREN SR [Concomitant]
     Route: 048
  5. PREDONINE [Concomitant]
     Route: 048

REACTIONS (1)
  - Enteritis [Recovering/Resolving]
